FAERS Safety Report 22172425 (Version 1)
Quarter: 2023Q2

REPORT INFORMATION
  Report Type: Spontaneous
  Country: CN (occurrence: CN)
  Receive Date: 20230404
  Receipt Date: 20230404
  Transmission Date: 20230722
  Serious: Yes (Other)
  Sender: FDA-Public Use
  Company Number: CN-PFIZER INC-PV202300060068

PATIENT
  Age: 60 Year
  Sex: Female
  Weight: 73 kg

DRUGS (3)
  1. CYTARABINE [Suspect]
     Active Substance: CYTARABINE
     Indication: Myelodysplastic syndrome
     Dosage: 0.1 G, 2X/DAY
     Dates: start: 20230312, end: 20230318
  2. CILASTATIN SODIUM\IMIPENEM [Concomitant]
     Active Substance: CILASTATIN SODIUM\IMIPENEM
     Indication: Myelodysplastic syndrome
     Dosage: 500 MG, 4X/DAY
     Route: 041
     Dates: start: 20230320, end: 20230322
  3. COMPOUND PARACETAMOL TABLETS (II) [Concomitant]
     Indication: Myelodysplastic syndrome
     Dosage: 1 DF, 3X/DAY
     Route: 048
     Dates: start: 20230315, end: 20230319

REACTIONS (2)
  - Transaminases increased [Recovering/Resolving]
  - Off label use [Unknown]

NARRATIVE: CASE EVENT DATE: 20230312
